FAERS Safety Report 5392639-4 (Version None)
Quarter: 2007Q3

REPORT INFORMATION
  Report Type: 
  Country: None (occurrence: None)
  Receive Date: 20070720
  Receipt Date: 20070710
  Transmission Date: 20080115
  Serious: Yes (Hospitalization)
  Sender: FDA-Public Use
  Company Number: CG-MERCK-0707USA01842

PATIENT
  Age: 37 Year
  Sex: Female

DRUGS (3)
  1. STROMECTOL [Suspect]
     Route: 048
     Dates: start: 20070409, end: 20070409
  2. CHLORAMPHENICOL [Concomitant]
     Route: 065
  3. ACETAMINOPHEN [Concomitant]
     Route: 065

REACTIONS (7)
  - ABNORMAL BEHAVIOUR [None]
  - ASTHENIA [None]
  - CHILLS [None]
  - CONJUNCTIVAL HAEMORRHAGE [None]
  - DRUG EXPOSURE DURING PREGNANCY [None]
  - HEADACHE [None]
  - VOMITING [None]
